FAERS Safety Report 21265644 (Version 1)
Quarter: 2022Q3

REPORT INFORMATION
  Report Type: Spontaneous
  Country: US (occurrence: None)
  Receive Date: 20220826
  Receipt Date: 20220826
  Transmission Date: 20221026
  Serious: Yes (unspecified)
  Sender: FDA-Public Use
  Company Number: None

PATIENT
  Age: 75 Year
  Sex: Female
  Weight: 54 kg

DRUGS (1)
  1. ETANERCEPT [Suspect]
     Active Substance: ETANERCEPT
     Indication: Psoriatic arthropathy
     Dosage: 50 MG OTHER SQ
     Route: 058
     Dates: start: 20220517, end: 20220621

REACTIONS (4)
  - Drug eruption [None]
  - Pruritus [None]
  - Urticaria [None]
  - Fungal infection [None]

NARRATIVE: CASE EVENT DATE: 20220621
